FAERS Safety Report 4954478-5 (Version None)
Quarter: 2006Q1

REPORT INFORMATION
  Report Type: 
  Country: None (occurrence: None)
  Receive Date: 20060321
  Receipt Date: 20060303
  Transmission Date: 20060701
  Serious: Yes (Death)
  Sender: FDA-Public Use
  Company Number: 20060008

PATIENT
  Age: 53 Year
  Sex: Female

DRUGS (1)
  1. NAVELBINE [Suspect]
     Indication: INFLAMMATORY CARCINOMA OF THE BREAST
     Dates: start: 20051208, end: 20060119

REACTIONS (5)
  - INTERSTITIAL LUNG DISEASE [None]
  - METASTASES TO LUNG [None]
  - PNEUMOCYSTIS JIROVECI PNEUMONIA [None]
  - RESPIRATORY FAILURE [None]
  - THERAPY NON-RESPONDER [None]
